FAERS Safety Report 16791687 (Version 1)
Quarter: 2019Q4

REPORT INFORMATION
  Report Type: Spontaneous
  Country: US (occurrence: US)
  Receive Date: 20190910
  Receipt Date: 20190910
  Transmission Date: 20200122
  Serious: No
  Sender: FDA-Public Use
  Company Number: None

PATIENT
  Age: 68 Year
  Sex: Female
  Weight: 111.1 kg

DRUGS (1)
  1. IBRANCE [Suspect]
     Active Substance: PALBOCICLIB
     Route: 048
     Dates: start: 20190823, end: 20190904

REACTIONS (4)
  - Pain [None]
  - Vomiting [None]
  - Therapy cessation [None]
  - Mobility decreased [None]

NARRATIVE: CASE EVENT DATE: 20190903
